FAERS Safety Report 12931186 (Version 1)
Quarter: 2016Q4

REPORT INFORMATION
  Report Type: Spontaneous
  Country: US (occurrence: US)
  Receive Date: 20161110
  Receipt Date: 20161110
  Transmission Date: 20170207
  Serious: No
  Sender: FDA-Public Use
  Company Number: US-JAZZ-2016-US-018044

PATIENT
  Sex: Female

DRUGS (21)
  1. XYREM [Suspect]
     Active Substance: SODIUM OXYBATE
     Indication: NARCOLEPSY
     Dosage: 1.5 G, BID
     Route: 048
     Dates: start: 200911, end: 200912
  2. XYREM [Suspect]
     Active Substance: SODIUM OXYBATE
     Dosage: 4.5 G, BID
     Route: 048
     Dates: start: 201512
  3. NUVIGIL [Concomitant]
     Active Substance: ARMODAFINIL
  4. XYREM [Suspect]
     Active Substance: SODIUM OXYBATE
     Dosage: 4.5 G, BID
     Route: 048
     Dates: start: 201309, end: 2015
  5. TEGRETOL [Concomitant]
     Active Substance: CARBAMAZEPINE
  6. ALLERGY SHOTS [Concomitant]
     Active Substance: UNSPECIFIED INGREDIENT
  7. PATANOL [Concomitant]
     Active Substance: OLOPATADINE HYDROCHLORIDE
  8. CLINDAMYCIN PHOSPHATE. [Concomitant]
     Active Substance: CLINDAMYCIN PHOSPHATE
  9. TYLENOL [Concomitant]
     Active Substance: ACETAMINOPHEN
  10. MULTIVITAMIN WITH C [Concomitant]
  11. XYREM [Suspect]
     Active Substance: SODIUM OXYBATE
     Dosage: 4.5 G, BID
     Route: 048
     Dates: start: 201003, end: 2010
  12. XYREM [Suspect]
     Active Substance: SODIUM OXYBATE
     Dosage: 4.5 G, BID
     Route: 048
     Dates: start: 201202, end: 2013
  13. ADVIL [Concomitant]
     Active Substance: IBUPROFEN
  14. LINZESS [Concomitant]
     Active Substance: LINACLOTIDE
  15. NASACORT AQUA [Concomitant]
  16. XYREM [Suspect]
     Active Substance: SODIUM OXYBATE
     Indication: CATAPLEXY
     Dosage: 3 G, BID
     Route: 048
     Dates: start: 200912, end: 201003
  17. NEURONTIN [Concomitant]
     Active Substance: GABAPENTIN
  18. PRILOSEC [Concomitant]
     Active Substance: OMEPRAZOLE MAGNESIUM
  19. VYVANSE [Concomitant]
     Active Substance: LISDEXAMFETAMINE DIMESYLATE
  20. LITHIUM. [Concomitant]
     Active Substance: LITHIUM
  21. FOLGARD RX [Concomitant]

REACTIONS (1)
  - Malaise [Not Recovered/Not Resolved]
